FAERS Safety Report 5472925-X (Version None)
Quarter: 2007Q4

REPORT INFORMATION
  Report Type: 
  Country: None (occurrence: None)
  Receive Date: 20071001
  Receipt Date: 20070920
  Transmission Date: 20080405
  Serious: Yes (Hospitalization)
  Sender: FDA-Public Use
  Company Number: B0488967A

PATIENT
  Sex: Female
  Weight: 65 kg

DRUGS (1)
  1. ARIXTRA [Suspect]
     Indication: CHEST PAIN
     Dosage: 7.5MG PER DAY
     Route: 058
     Dates: start: 20070901

REACTIONS (2)
  - OESOPHAGEAL HAEMORRHAGE [None]
  - OFF LABEL USE [None]
